FAERS Safety Report 11609260 (Version 1)
Quarter: 2015Q4

REPORT INFORMATION
  Report Type: Spontaneous
  Country: US (occurrence: US)
  Receive Date: 20151007
  Receipt Date: 20151007
  Transmission Date: 20160304
  Serious: No
  Sender: FDA-Public Use
  Company Number: US-SHIRE-US201512325

PATIENT
  Sex: Male
  Weight: 23.58 kg

DRUGS (3)
  1. INTUNIV [Suspect]
     Active Substance: GUANFACINE HYDROCHLORIDE
     Indication: ATTENTION DEFICIT/HYPERACTIVITY DISORDER
     Dosage: 1 MG, UNKNOWN
     Route: 048
     Dates: start: 201304
  2. INTUNIV [Suspect]
     Active Substance: GUANFACINE HYDROCHLORIDE
     Indication: AUTISM
     Dosage: 2 MG, UNKNOWN
     Route: 048
  3. INTUNIV [Suspect]
     Active Substance: GUANFACINE HYDROCHLORIDE
     Dosage: UNK UNK, UNKNOWN (1 AND 1/2 MG OF TABLET)
     Route: 048

REACTIONS (7)
  - Dysphonia [Unknown]
  - Wrong technique in product usage process [Not Recovered/Not Resolved]
  - Psychomotor hyperactivity [Unknown]
  - Drug effect decreased [Not Recovered/Not Resolved]
  - Disturbance in social behaviour [Unknown]
  - Drug effect increased [Not Recovered/Not Resolved]
  - Negativism [Unknown]
